FAERS Safety Report 7849569-5 (Version None)
Quarter: 2011Q4

REPORT INFORMATION
  Report Type: 
  Country: None (occurrence: None)
  Receive Date: 20111026
  Receipt Date: 20111014
  Transmission Date: 20120403
  Serious: Yes (Other)
  Sender: FDA-Public Use
  Company Number: FI-JNJFOC-20111002395

PATIENT
  Sex: Female

DRUGS (4)
  1. REMICADE [Suspect]
     Indication: CROHN'S DISEASE
     Dosage: THIRD INFUSION
     Route: 042
     Dates: start: 20111005
  2. HUMIRA [Suspect]
     Indication: CROHN'S DISEASE
     Route: 065
  3. REMICADE [Suspect]
     Dosage: REINITIATED AGAIN IN THE AUTUMN 2011
     Route: 042
     Dates: start: 20110101
  4. REMICADE [Suspect]
     Route: 042
     Dates: start: 19990101

REACTIONS (5)
  - SUBCUTANEOUS HAEMATOMA [None]
  - COAGULATION TIME PROLONGED [None]
  - NASOPHARYNGITIS [None]
  - PLATELET COUNT DECREASED [None]
  - INSOMNIA [None]
